FAERS Safety Report 10208796 (Version 1)
Quarter: 2014Q2

REPORT INFORMATION
  Report Type: Report from Study
  Country: FR (occurrence: FR)
  Receive Date: 20140530
  Receipt Date: 20140530
  Transmission Date: 20141212
  Serious: Yes (Hospitalization)
  Sender: FDA-Public Use
  Company Number: FR-ABBVIE-14P-056-1239204-00

PATIENT
  Sex: Female

DRUGS (5)
  1. HUMIRA [Suspect]
     Indication: RHEUMATOID ARTHRITIS
     Route: 058
     Dates: start: 20130326, end: 20131202
  2. HUMIRA [Suspect]
     Route: 058
     Dates: start: 20140106
  3. APROVEL [Concomitant]
     Indication: HYPERTENSION
     Dates: start: 2007
  4. DETENSIEL [Concomitant]
     Indication: MYOCARDIAL INFARCTION
     Dates: start: 2006
  5. PRAVADUAL [Concomitant]
     Indication: MYOCARDIAL INFARCTION
     Dates: start: 2010

REACTIONS (1)
  - Lumbar spinal stenosis [Recovered/Resolved with Sequelae]
